FAERS Safety Report 9426947 (Version 4)
Quarter: 2013Q4

REPORT INFORMATION
  Report Type: Spontaneous
  Country: US (occurrence: US)
  Receive Date: 20130730
  Receipt Date: 20131212
  Transmission Date: 20140711
  Serious: Yes (Life-Threatening, Hospitalization, Disabling, Other)
  Sender: FDA-Public Use
  Company Number: US-ASTRAZENECA-2013SE56141

PATIENT
  Age: 72 Year
  Sex: Female
  Weight: 95.3 kg

DRUGS (35)
  1. CRESTOR [Suspect]
     Indication: BLOOD CHOLESTEROL INCREASED
     Route: 048
     Dates: start: 2012, end: 201304
  2. CRESTOR [Suspect]
     Indication: HYPERLIPIDAEMIA
     Route: 048
     Dates: start: 2012, end: 201304
  3. CRESTOR [Suspect]
     Indication: BLOOD CHOLESTEROL INCREASED
     Route: 048
     Dates: start: 20120309, end: 20130513
  4. CRESTOR [Suspect]
     Indication: HYPERLIPIDAEMIA
     Route: 048
     Dates: start: 20120309, end: 20130513
  5. PRILOSEC [Suspect]
     Indication: GASTROOESOPHAGEAL REFLUX DISEASE
     Route: 048
     Dates: start: 201304
  6. PRILOSEC [Suspect]
     Indication: GASTROOESOPHAGEAL REFLUX DISEASE
     Dosage: GENERIC
     Route: 048
  7. PRILOSEC [Suspect]
     Indication: GASTROOESOPHAGEAL REFLUX DISEASE
     Route: 048
  8. MEDROL [Suspect]
     Indication: ANTICOAGULANT THERAPY
     Route: 065
  9. LOPRESSOR [Concomitant]
     Indication: MIGRAINE
     Route: 048
  10. LOPRESSOR [Concomitant]
     Indication: MIGRAINE
     Route: 048
     Dates: start: 1991
  11. LYRICA [Concomitant]
     Indication: DIABETIC NEUROPATHY
     Route: 048
  12. LYRICA [Concomitant]
     Indication: DIABETIC NEUROPATHY
     Route: 048
  13. ASPIRIN [Concomitant]
     Indication: ANTICOAGULANT THERAPY
     Route: 048
     Dates: start: 2006
  14. CALCIUM WITH VIT D [Concomitant]
  15. MVI [Concomitant]
     Dosage: DAILY
  16. NOVOLOG 70/30 [Concomitant]
     Indication: DIABETES MELLITUS
     Route: 058
  17. FUROSEMIDE [Concomitant]
     Indication: FLUID RETENTION
     Route: 048
  18. FUROSEMIDE [Concomitant]
     Indication: FLUID RETENTION
     Route: 048
  19. HYDROXIZINE [Concomitant]
     Indication: DERMATITIS ALLERGIC
     Dosage: PRN
  20. HYDROXIZINE [Concomitant]
     Indication: PRURITUS
     Dosage: PRN
  21. HYDROXIZINE [Concomitant]
     Indication: DERMATITIS ALLERGIC
     Dosage: 1 DF 3 TIMES A DAY AS NEEDED
     Route: 048
  22. HYDROXIZINE [Concomitant]
     Indication: PRURITUS
     Dosage: 1 DF 3 TIMES A DAY AS NEEDED
     Route: 048
  23. INSULIN [Concomitant]
     Dosage: 70/30, 45 UNITS DAILY
     Route: 058
     Dates: start: 2006, end: 2013
  24. INSULIN [Concomitant]
     Dosage: 70/30, 40 UNITS AT NIGHT
     Route: 058
     Dates: start: 2006, end: 2013
  25. LEVEMIR [Concomitant]
     Indication: DIABETES MELLITUS
  26. LOSARTAN POTASSIUM [Concomitant]
     Indication: HYPERTENSION
     Route: 048
  27. NORCO [Concomitant]
     Indication: PAIN
     Dosage: 5/325 DAILY
     Route: 048
  28. GABAPENTIN [Concomitant]
     Route: 048
  29. OMEGA 3 FA [Concomitant]
     Route: 048
  30. VICODIN [Concomitant]
     Dosage: 5-500, EVERY 8 HOURS AS NEEDED
     Route: 048
  31. INSULIN ASPART [Concomitant]
     Dosage: 100 UNIT/ML, 2-10 UNITS, TIMES A DAY BEFORE MEALS
  32. INSULIN ASPART PROTAMINE INSULIN [Concomitant]
     Dosage: 40-45 UNITS, TWO TIMES A DAY
  33. ATIVAN [Concomitant]
     Route: 048
  34. STARLIX [Concomitant]
  35. VITAMIN E [Concomitant]
     Dosage: 2000 UNITS, TWO TIMES A DAY
     Route: 048

REACTIONS (22)
  - Adverse event [Unknown]
  - Gait disturbance [Unknown]
  - Mobility decreased [Not Recovered/Not Resolved]
  - Hepatic failure [Recovering/Resolving]
  - Activities of daily living impaired [Recovering/Resolving]
  - Adverse drug reaction [Unknown]
  - Migraine [Recovered/Resolved]
  - Hearing impaired [Unknown]
  - Visual impairment [Unknown]
  - Renal failure [Unknown]
  - Urinary tract infection [Unknown]
  - Anaemia [Unknown]
  - Drug intolerance [Unknown]
  - Rhabdomyolysis [Recovered/Resolved]
  - Pain in extremity [Unknown]
  - Muscular weakness [Recovering/Resolving]
  - Urticaria [Unknown]
  - Hepatic enzyme increased [Recovering/Resolving]
  - Diabetic neuropathy [Unknown]
  - Condition aggravated [Recovering/Resolving]
  - Influenza like illness [Recovering/Resolving]
  - Asthenia [Recovering/Resolving]
